FAERS Safety Report 13889030 (Version 2)
Quarter: 2017Q3

REPORT INFORMATION
  Report Type: Report from Study
  Country: CA (occurrence: CA)
  Receive Date: 20170821
  Receipt Date: 20170908
  Transmission Date: 20171127
  Serious: Yes (Death)
  Sender: FDA-Public Use
  Company Number: CA-HLSUS-2017-CA-000899

PATIENT
  Age: 80 Year
  Sex: Male
  Weight: 54 kg

DRUGS (7)
  1. VITAMIN D [Concomitant]
     Active Substance: CHOLECALCIFEROL
  2. ATROPINE DROPS [Concomitant]
  3. TRAZODONE [Concomitant]
     Active Substance: TRAZODONE HYDROCHLORIDE
     Indication: INSOMNIA
     Dosage: 100 MG QHS
     Route: 048
     Dates: end: 20170725
  4. ACETYLSALICYLIC ACID (ASA) [Concomitant]
  5. CLOZARIL [Suspect]
     Active Substance: CLOZAPINE
     Indication: SCHIZOPHRENIA
     Dosage: 25 MG DAILY MORNING AND 37.5 MG DAILY BED TIME
     Route: 048
     Dates: start: 20150127, end: 20170725
  6. LACTULOSE. [Concomitant]
     Active Substance: LACTULOSE
  7. TYLENOL [Concomitant]
     Active Substance: ACETAMINOPHEN

REACTIONS (1)
  - Pneumonia [Fatal]

NARRATIVE: CASE EVENT DATE: 20170724
